FAERS Safety Report 5144050-9 (Version None)
Quarter: 2006Q4

REPORT INFORMATION
  Report Type: 
  Country: None (occurrence: None)
  Receive Date: 20061106
  Receipt Date: 20061101
  Transmission Date: 20070319
  Serious: Yes (Other)
  Sender: FDA-Public Use
  Company Number: US-JNJFOC-20061100385

PATIENT
  Sex: Female
  Weight: 64.41 kg

DRUGS (7)
  1. EXTRA STRENGTH TYLENOL [Suspect]
  2. EXTRA STRENGTH TYLENOL [Suspect]
     Indication: HEADACHE
  3. SYNTHROID [Concomitant]
     Indication: HYPOTHYROIDISM
  4. BENICAR [Concomitant]
     Indication: HYPERTENSION
  5. ACIPHEX [Concomitant]
     Indication: GASTROOESOPHAGEAL REFLUX DISEASE
  6. LEXAPRO [Concomitant]
     Indication: CONVULSION
  7. CLONAZEPAM [Concomitant]
     Indication: CONVULSION

REACTIONS (2)
  - DYSPNOEA [None]
  - WHEEZING [None]
